FAERS Safety Report 9461702 (Version 2)
Quarter: 2013Q3

REPORT INFORMATION
  Report Type: Spontaneous
  Country: US (occurrence: US)
  Receive Date: 20130816
  Receipt Date: 20130903
  Transmission Date: 20140515
  Serious: No
  Sender: FDA-Public Use
  Company Number: US-JNJFOC-20130801690

PATIENT
  Sex: Female

DRUGS (2)
  1. INVEGA SUSTENNA [Suspect]
     Indication: SCHIZOPHRENIA
     Route: 030
     Dates: start: 20130304
  2. INVEGA SUSTENNA [Suspect]
     Indication: SCHIZOPHRENIA
     Route: 030
     Dates: start: 20121205

REACTIONS (4)
  - Akathisia [Not Recovered/Not Resolved]
  - Memory impairment [Not Recovered/Not Resolved]
  - Lip disorder [Not Recovered/Not Resolved]
  - Drooling [Not Recovered/Not Resolved]
